FAERS Safety Report 5870702-9 (Version None)
Quarter: 2008Q3

REPORT INFORMATION
  Report Type: 
  Country: None (occurrence: None)
  Receive Date: 20080904
  Receipt Date: 20080904
  Transmission Date: 20090109
  Serious: Yes (Hospitalization)
  Sender: FDA-Public Use
  Company Number: PHEH1995US03463

PATIENT
  Sex: Female

DRUGS (6)
  1. SANDIMMUNE [Suspect]
     Route: 048
     Dates: start: 19950808, end: 19950822
  2. PREDNISONE [Concomitant]
  3. IMURAN [Concomitant]
  4. LASIX [Concomitant]
  5. MORPHINE [Concomitant]
  6. NIPRIDE (NITROPRUSSIDE SODIUM) [Concomitant]

REACTIONS (6)
  - BLOOD CREATININE INCREASED [None]
  - PULMONARY OEDEMA [None]
  - RENAL TUBULAR NECROSIS [None]
  - RESPIRATORY FAILURE [None]
  - SEPSIS [None]
  - WHITE BLOOD CELL COUNT INCREASED [None]
